FAERS Safety Report 6827188-7 (Version None)
Quarter: 2010Q3

REPORT INFORMATION
  Report Type: 
  Country: None (occurrence: None)
  Receive Date: 20100709
  Receipt Date: 20100629
  Transmission Date: 20110219
  Serious: Yes (Hospitalization, Other)
  Sender: FDA-Public Use
  Company Number: US-ELI_LILLY_AND_COMPANY-US201006008040

PATIENT
  Age: 66 Year
  Sex: Male

DRUGS (6)
  1. ALIMTA [Suspect]
     Indication: ADENOCARCINOMA
     Dosage: 50 MG/M2, UNK
  2. CARBOPLATIN [Concomitant]
     Indication: ADENOCARCINOMA
     Dosage: 5.5 UNK, UNK
  3. NEULASTA [Concomitant]
  4. FOLIC ACID [Concomitant]
  5. VITAMIN B-12 [Concomitant]
  6. OXYCODONE HCL [Concomitant]

REACTIONS (5)
  - DEHYDRATION [None]
  - DIARRHOEA [None]
  - MALIGNANT NEOPLASM PROGRESSION [None]
  - NEUTROPENIA [None]
  - PERFORMANCE STATUS DECREASED [None]
